FAERS Safety Report 9027818 (Version 3)
Quarter: 2013Q1

REPORT INFORMATION
  Report Type: Spontaneous
  Country: JP (occurrence: JP)
  Receive Date: 20130124
  Receipt Date: 20130313
  Transmission Date: 20140127
  Serious: Yes (Hospitalization, Other)
  Sender: FDA-Public Use
  Company Number: JP-JNJFOC-20130109673

PATIENT
  Age: 54 Year
  Sex: Male

DRUGS (4)
  1. INVEGA [Suspect]
     Indication: PRODUCT USED FOR UNKNOWN INDICATION
     Route: 048
     Dates: start: 20130207, end: 20130214
  2. INVEGA [Suspect]
     Indication: PRODUCT USED FOR UNKNOWN INDICATION
     Route: 048
     Dates: start: 20121115, end: 20130206
  3. INVEGA [Suspect]
     Indication: PRODUCT USED FOR UNKNOWN INDICATION
     Route: 048
     Dates: start: 20121025, end: 20121115
  4. CERCINE [Concomitant]
     Route: 048

REACTIONS (3)
  - Suicide attempt [Recovering/Resolving]
  - Akathisia [Recovered/Resolved]
  - Anger [Unknown]
